FAERS Safety Report 13423523 (Version 3)
Quarter: 2018Q2

REPORT INFORMATION
  Report Type: Spontaneous
  Country: US (occurrence: US)
  Receive Date: 20170410
  Receipt Date: 20180424
  Transmission Date: 20180711
  Serious: Yes (Hospitalization, Disabling, Other)
  Sender: FDA-Public Use
  Company Number: US-PFIZER INC-2017149638

PATIENT
  Age: 46 Year
  Sex: Male
  Weight: 83.9 kg

DRUGS (3)
  1. CHANTIX [Suspect]
     Active Substance: VARENICLINE TARTRATE
     Dosage: 1 MG, 2X/DAY (FOR THREE 28 DAY SUPPLIES THREE TIMES SINCE 2014)
     Route: 048
     Dates: start: 2014
  2. CHANTIX [Suspect]
     Active Substance: VARENICLINE TARTRATE
     Dosage: 1 DF, 2X/DAY
     Route: 048
     Dates: start: 2007
  3. CHANTIX [Suspect]
     Active Substance: VARENICLINE TARTRATE
     Indication: SMOKING CESSATION THERAPY
     Dosage: 1 DF, 1X/DAY
     Route: 048
     Dates: start: 2007, end: 2007

REACTIONS (22)
  - Loss of consciousness [Not Recovered/Not Resolved]
  - Head discomfort [Not Recovered/Not Resolved]
  - Apparent death [Not Recovered/Not Resolved]
  - Weight increased [Recovered/Resolved]
  - Irritability [Unknown]
  - Heart rate increased [Unknown]
  - Tremor [Not Recovered/Not Resolved]
  - Speech disorder [Not Recovered/Not Resolved]
  - Abdominal distension [Recovered/Resolved]
  - Dizziness [Recovering/Resolving]
  - Multiple system atrophy [Not Recovered/Not Resolved]
  - Central nervous system lesion [Not Recovered/Not Resolved]
  - Gait disturbance [Not Recovered/Not Resolved]
  - Abdominal discomfort [Recovered/Resolved]
  - Hypoxia [Not Recovered/Not Resolved]
  - Cerebellar atrophy [Recovered/Resolved]
  - Neuropathy peripheral [Not Recovered/Not Resolved]
  - Hyperhidrosis [Unknown]
  - Hypoaesthesia [Unknown]
  - Paraesthesia [Unknown]
  - Malaise [Not Recovered/Not Resolved]
  - Hypertension [Not Recovered/Not Resolved]

NARRATIVE: CASE EVENT DATE: 2009
